FAERS Safety Report 24155012 (Version 1)
Quarter: 2024Q3

REPORT INFORMATION
  Report Type: Report from Study
  Country: US (occurrence: None)
  Receive Date: 20240731
  Receipt Date: 20240731
  Transmission Date: 20241017
  Serious: Yes (Other)
  Sender: ASTRAZENECA
  Company Number: 2020SF57205

PATIENT
  Age: 81 Year
  Sex: Male

DRUGS (1)
  1. TAGRISSO [Suspect]
     Active Substance: OSIMERTINIB
     Indication: Lung neoplasm malignant
     Route: 048

REACTIONS (6)
  - Toxicity to various agents [Unknown]
  - Diarrhoea [Unknown]
  - Constipation [Unknown]
  - Lethargy [Unknown]
  - Onychomycosis [Unknown]
  - Dyspnoea exertional [Unknown]
